FAERS Safety Report 7063248-6 (Version None)
Quarter: 2010Q4

REPORT INFORMATION
  Report Type: 
  Country: None (occurrence: None)
  Receive Date: 20101026
  Receipt Date: 20100628
  Transmission Date: 20110411
  Serious: Yes (Other)
  Sender: FDA-Public Use
  Company Number: US-PFIZER INC-2010033844

PATIENT
  Sex: Male
  Weight: 92.971 kg

DRUGS (9)
  1. LIPITOR [Suspect]
     Indication: BLOOD CHOLESTEROL INCREASED
     Dosage: 40 MG, 1X/DAY
     Route: 048
     Dates: start: 19950101
  2. COREG [Concomitant]
  3. ALTACE [Concomitant]
  4. TAMSULOSIN HYDROCHLORIDE [Concomitant]
  5. POTASSIUM CHLORIDE [Concomitant]
  6. FINASTERIDE [Concomitant]
  7. ACETYLSALICYLIC ACID [Concomitant]
  8. GLIMEPIRIDE [Concomitant]
  9. TORSEMIDE [Concomitant]

REACTIONS (1)
  - MUSCULAR WEAKNESS [None]
